FAERS Safety Report 4562719-1 (Version None)
Quarter: 2005Q1

REPORT INFORMATION
  Report Type: 
  Country: None (occurrence: None)
  Receive Date: 20050124
  Receipt Date: 20050111
  Transmission Date: 20050727
  Serious: Yes (Other)
  Sender: FDA-Public Use
  Company Number: SUS1-2005-00027

PATIENT
  Age: 23 Year
  Sex: Female

DRUGS (2)
  1. MESALAMINE [Suspect]
  2. PANTOPRAZOLE (PANTOPRAZOLE) [Concomitant]

REACTIONS (9)
  - CONDITION AGGRAVATED [None]
  - DEHYDRATION [None]
  - DRUG HYPERSENSITIVITY [None]
  - EOSINOPHILIA [None]
  - FOOD ALLERGY [None]
  - GASTRITIS EROSIVE [None]
  - GASTROENTERITIS EOSINOPHILIC [None]
  - LYMPHOCYTE TRANSFORMATION TEST POSITIVE [None]
  - PROCTITIS [None]
